FAERS Safety Report 4332063-6 (Version None)
Quarter: 2004Q1

REPORT INFORMATION
  Report Type: 
  Country: None (occurrence: None)
  Receive Date: 20040331
  Receipt Date: 20040322
  Transmission Date: 20041129
  Serious: Yes (Hospitalization)
  Sender: FDA-Public Use
  Company Number: FR-JNJFOC-20040304860

PATIENT
  Age: 64 Year
  Sex: Male

DRUGS (9)
  1. TRAMADOL HCL [Suspect]
     Indication: DRUG USE FOR UNKNOWN INDICATION
     Dosage: ORAL
     Route: 048
     Dates: start: 20040114, end: 20040202
  2. ACETAMINOPHEN [Suspect]
     Indication: DRUG USE FOR UNKNOWN INDICATION
     Dosage: 6 IU, ORAL
     Route: 048
     Dates: start: 20040115, end: 20040202
  3. CALCIPARINE [Suspect]
     Indication: DRUG USE FOR UNKNOWN INDICATION
     Dosage: 2.1 ML, SUBCUTANEOUS
     Route: 058
     Dates: start: 20040108
  4. PREVISCAN (FLUINDIONE) [Suspect]
     Indication: DRUG USE FOR UNKNOWN INDICATION
     Dosage: ORAL
     Route: 048
     Dates: start: 20040109, end: 20040225
  5. LASIX [Concomitant]
  6. ODRIK (TRANDOLAPRIL) [Concomitant]
  7. DIAMOX [Concomitant]
  8. CORDARONE [Concomitant]
  9. POTASSIUM CHLORIDE [Concomitant]

REACTIONS (6)
  - DERMATITIS BULLOUS [None]
  - DRUG INTERACTION [None]
  - OVERDOSE [None]
  - RASH PAPULAR [None]
  - SKIN BLEEDING [None]
  - SKIN NECROSIS [None]
